FAERS Safety Report 24888623 (Version 2)
Quarter: 2025Q1

REPORT INFORMATION
  Report Type: Report from Study
  Country: MX (occurrence: MX)
  Receive Date: 20250127
  Receipt Date: 20250214
  Transmission Date: 20250409
  Serious: Yes (Death)
  Sender: SERVIER
  Company Number: MX-SERVIER-S25000873

PATIENT

DRUGS (1)
  1. VORASIDENIB [Suspect]
     Active Substance: VORASIDENIB
     Indication: Oligodendroglioma
     Route: 048

REACTIONS (2)
  - Disease progression [Fatal]
  - Off label use [Recovered/Resolved]
